FAERS Safety Report 24280522 (Version 2)
Quarter: 2024Q3

REPORT INFORMATION
  Report Type: Spontaneous
  Country: GR (occurrence: GR)
  Receive Date: 20240904
  Receipt Date: 20240910
  Transmission Date: 20241016
  Serious: Yes (Death, Hospitalization, Other)
  Sender: GENMAB
  Company Number: GR-ABBVIE-5897689

PATIENT
  Sex: Male

DRUGS (1)
  1. EPCORITAMAB [Suspect]
     Active Substance: EPCORITAMAB
     Indication: Diffuse large B-cell lymphoma
     Dosage: UNK
     Route: 058

REACTIONS (4)
  - Diffuse large B-cell lymphoma [Fatal]
  - Platelet count decreased [Unknown]
  - Respiratory tract infection [Unknown]
  - Pulmonary embolism [Unknown]
